FAERS Safety Report 8515321-0 (Version None)
Quarter: 2012Q3

REPORT INFORMATION
  Report Type: 
  Country: None (occurrence: None)
  Receive Date: 20120717
  Receipt Date: 20120705
  Transmission Date: 20120928
  Serious: No
  Sender: FDA-Public Use
  Company Number: US-ASTRAZENECA-2012SE45894

PATIENT
  Age: 48 Year
  Sex: Female
  Weight: 63.5 kg

DRUGS (1)
  1. SYMBICORT [Suspect]
     Indication: BRONCHITIS
     Route: 055

REACTIONS (3)
  - INTENTIONAL DRUG MISUSE [None]
  - DYSPNOEA [None]
  - INSOMNIA [None]
